FAERS Safety Report 14756007 (Version 1)
Quarter: 2018Q2

REPORT INFORMATION
  Report Type: Spontaneous
  Country: NZ (occurrence: NZ)
  Receive Date: 20180413
  Receipt Date: 20180413
  Transmission Date: 20180711
  Serious: Yes (Other)
  Sender: FDA-Public Use
  Company Number: NZ-ALKEM LABORATORIES LIMITED-NZ-ALKEM-2017-01409

PATIENT
  Sex: Male

DRUGS (1)
  1. QUETIAPINE FUMARATE. [Suspect]
     Active Substance: QUETIAPINE FUMARATE
     Indication: PRODUCT USED FOR UNKNOWN INDICATION
     Dosage: DAILY DOSES OF BETWEEN 600 MG AND 1000 MG
     Route: 065

REACTIONS (1)
  - Cardiomyopathy [Unknown]
